FAERS Safety Report 24346004 (Version 2)
Quarter: 2024Q4

REPORT INFORMATION
  Report Type: Report from Study
  Country: US (occurrence: US)
  Receive Date: 20240920
  Receipt Date: 20241001
  Transmission Date: 20250115
  Serious: Yes (Hospitalization)
  Sender: ABBVIE
  Company Number: US-ABBVIE-5926451

PATIENT
  Sex: Male

DRUGS (1)
  1. HUMIRA [Suspect]
     Active Substance: ADALIMUMAB
     Indication: Psoriatic arthropathy
     Dosage: DRUG END DATE WAS AUG 2024 OR SEP 2024
     Route: 058
     Dates: start: 20190101

REACTIONS (4)
  - Endocarditis [Unknown]
  - COVID-19 [Unknown]
  - Sepsis [Recovering/Resolving]
  - Cardiac polyp [Unknown]
